FAERS Safety Report 20070942 (Version 1)
Quarter: 2021Q4

REPORT INFORMATION
  Report Type: Spontaneous
  Country: JP (occurrence: JP)
  Receive Date: 20211115
  Receipt Date: 20211115
  Transmission Date: 20220304
  Serious: Yes (Death, Other)
  Sender: FDA-Public Use
  Company Number: JP-GILEAD-2021-0556016

PATIENT
  Age: 73 Year
  Sex: Male

DRUGS (1)
  1. VEKLURY [Suspect]
     Active Substance: REMDESIVIR
     Indication: COVID-19
     Dosage: UNK
     Route: 065

REACTIONS (7)
  - Respiratory failure [Fatal]
  - Circulatory collapse [Fatal]
  - Acute kidney injury [Unknown]
  - Right ventricular failure [Unknown]
  - Gastrointestinal haemorrhage [Unknown]
  - Oxygen saturation decreased [Unknown]
  - Pulmonary arterial pressure increased [Unknown]
